FAERS Safety Report 12159451 (Version 1)
Quarter: 2016Q1

REPORT INFORMATION
  Report Type: Spontaneous
  Country: JP (occurrence: JP)
  Receive Date: 20160308
  Receipt Date: 20160308
  Transmission Date: 20160526
  Serious: Yes (Hospitalization)
  Sender: FDA-Public Use
  Company Number: JP-JNJFOC-20160306690

PATIENT
  Sex: Male

DRUGS (5)
  1. CANAGLU [Suspect]
     Active Substance: CANAGLIFLOZIN
     Indication: TYPE 2 DIABETES MELLITUS
     Dosage: 100 MG STRENGTH, 0.5 FREQUENCY, DAILY
     Route: 048
     Dates: end: 20150130
  2. ZETIA [Concomitant]
     Active Substance: EZETIMIBE
     Route: 048
  3. METACT [Concomitant]
     Active Substance: METFORMIN HYDROCHLORIDE\PIOGLITAZONE HYDROCHLORIDE
     Indication: TYPE 2 DIABETES MELLITUS
     Route: 048
  4. BLOPRESS [Concomitant]
     Active Substance: CANDESARTAN CILEXETIL
     Route: 048
  5. LOTRIGA [Concomitant]
     Active Substance: OMEGA-3-ACID ETHYL ESTERS
     Route: 048

REACTIONS (2)
  - Incorrect dose administered [Unknown]
  - Colon cancer [Recovered/Resolved]

NARRATIVE: CASE EVENT DATE: 20150130
